FAERS Safety Report 7397653-5 (Version None)
Quarter: 2011Q2

REPORT INFORMATION
  Report Type: 
  Country: None (occurrence: None)
  Receive Date: 20110401
  Receipt Date: 20110401
  Transmission Date: 20111010
  Serious: No
  Sender: FDA-Public Use
  Company Number: None

PATIENT
  Age: 71 Year
  Sex: Female
  Weight: 68.0396 kg

DRUGS (1)
  1. ZICAM COLD REMEDY RAPID MELTS ZICAM LLC [Suspect]
     Indication: NASOPHARYNGITIS
     Dosage: 1 TABLET EVERY 3 HOURS PO
     Route: 048
     Dates: start: 20110317, end: 20110324

REACTIONS (2)
  - AGEUSIA [None]
  - ANOSMIA [None]
